FAERS Safety Report 10005274 (Version 1)
Quarter: 2014Q1

REPORT INFORMATION
  Report Type: Spontaneous
  Country: US (occurrence: US)
  Receive Date: 20140312
  Receipt Date: 20140312
  Transmission Date: 20141002
  Serious: Yes (Hospitalization, Other)
  Sender: FDA-Public Use
  Company Number: US-B.I. PHARMACEUTICALS,INC./RIDGEFIELD-2014-BI-10475BP

PATIENT
  Sex: Male
  Weight: 93 kg

DRUGS (2)
  1. SPIRIVA [Suspect]
     Indication: CHRONIC OBSTRUCTIVE PULMONARY DISEASE
     Dosage: 18 MCG
     Route: 055
     Dates: start: 2008
  2. NASAL OXYGEN [Concomitant]
     Dosage: DOSE PER APPLICATION: 4 LITERS
     Route: 065
     Dates: start: 2009

REACTIONS (3)
  - Lung neoplasm malignant [Not Recovered/Not Resolved]
  - Pneumothorax [Recovered/Resolved]
  - Coronary artery occlusion [Recovered/Resolved]
